FAERS Safety Report 24583512 (Version 1)
Quarter: 2024Q4

REPORT INFORMATION
  Report Type: Spontaneous
  Country: FR (occurrence: FR)
  Receive Date: 20241106
  Receipt Date: 20241106
  Transmission Date: 20250114
  Serious: Yes (Death)
  Sender: ACCORD
  Company Number: None

PATIENT
  Age: 52 Year
  Sex: Female
  Weight: 50.3 kg

DRUGS (14)
  1. ONDANSETRON [Interacting]
     Active Substance: ONDANSETRON
     Indication: Vomiting
     Dates: start: 2024
  2. POSACONAZOLE [Interacting]
     Active Substance: POSACONAZOLE
     Indication: Oral candidiasis
     Dates: start: 20240718
  3. DIAZEPAM [Interacting]
     Active Substance: DIAZEPAM
     Indication: Product used for unknown indication
     Dates: start: 201902
  4. AMISULPRIDE [Interacting]
     Active Substance: AMISULPRIDE
     Indication: Bipolar disorder
     Dates: start: 2018
  5. SERTRALINE [Interacting]
     Active Substance: SERTRALINE HYDROCHLORIDE
     Indication: Bipolar disorder
     Dates: start: 2018
  6. LAMOTRIGINE [Concomitant]
     Active Substance: LAMOTRIGINE
     Indication: Bipolar disorder
     Dates: start: 2018
  7. TRAMADOL [Interacting]
     Active Substance: TRAMADOL
     Indication: Product used for unknown indication
     Dates: start: 2023
  8. EBASTINE [Interacting]
     Active Substance: EBASTINE
     Indication: Product used for unknown indication
     Dosage: STRENGTH: 10 MG
     Dates: start: 2018
  9. BIMATOPROST\TIMOLOL [Interacting]
     Active Substance: BIMATOPROST\TIMOLOL
     Indication: Glaucoma
     Dosage: STRENGTH: 300 MCG/ML + 5 MG/ML
     Dates: start: 2023
  10. LANSOPRAZOLE [Interacting]
     Active Substance: LANSOPRAZOLE
     Indication: Gastroduodenal ulcer
     Dates: start: 2023
  11. LACTULOSE [Concomitant]
     Active Substance: LACTULOSE
     Dates: start: 2024
  12. ZOPICLONE [Concomitant]
     Active Substance: ZOPICLONE
     Dates: start: 2024
  13. PAROEX [Concomitant]
     Active Substance: CHLORHEXIDINE GLUCONATE
     Dosage: STRENGTH: 0.12 %, MOUTHWASH SOLUTION
     Dates: start: 2024
  14. LEVOTHYROXINE [Concomitant]
     Active Substance: LEVOTHYROXINE
     Dosage: STRENGTH: 25 MCG
     Dates: start: 20240611

REACTIONS (1)
  - Cardiac arrest [Fatal]

NARRATIVE: CASE EVENT DATE: 20240725
